FAERS Safety Report 4752952-8 (Version None)
Quarter: 2005Q3

REPORT INFORMATION
  Report Type: 
  Country: None (occurrence: None)
  Receive Date: 20050823
  Receipt Date: 20050804
  Transmission Date: 20060218
  Serious: Yes (Other)
  Sender: FDA-Public Use
  Company Number: US_020382329

PATIENT
  Sex: Female

DRUGS (4)
  1. HUMULIN N [Suspect]
     Indication: DIABETES MELLITUS
     Dosage: 16 U/2 DAY
  2. HUMULIN R [Suspect]
     Indication: DIABETES MELLITUS
  3. ILETIN-INSULIN-ANIMAL (INSULI [Suspect]
     Indication: DIABETES MELLITUS
  4. LANTUS [Concomitant]

REACTIONS (13)
  - APHAGIA [None]
  - ARTHROPATHY [None]
  - BLOOD GLUCOSE DECREASED [None]
  - CEREBROVASCULAR ACCIDENT [None]
  - DIALYSIS [None]
  - INFLUENZA LIKE ILLNESS [None]
  - LEG AMPUTATION [None]
  - MALAISE [None]
  - PHARMACEUTICAL PRODUCT COMPLAINT [None]
  - RENAL TRANSPLANT [None]
  - RETINOPATHY [None]
  - VISION BLURRED [None]
  - VISUAL DISTURBANCE [None]
